FAERS Safety Report 11819203 (Version 1)
Quarter: 2015Q4

REPORT INFORMATION
  Report Type: Spontaneous
  Country: US (occurrence: None)
  Receive Date: 20151209
  Receipt Date: 20151209
  Transmission Date: 20160305
  Serious: Yes (Hospitalization)
  Sender: FDA-Public Use
  Company Number: None

PATIENT
  Age: 70 Year
  Sex: Female
  Weight: 93.9 kg

DRUGS (14)
  1. CATAPRES [Concomitant]
     Active Substance: CLONIDINE HYDROCHLORIDE
  2. LISINOPRIL. [Suspect]
     Active Substance: LISINOPRIL
     Indication: HYPERTENSION
     Route: 048
  3. ELAVIL [Concomitant]
     Active Substance: AMITRIPTYLINE HYDROCHLORIDE
  4. PROTONIX [Concomitant]
     Active Substance: PANTOPRAZOLE SODIUM
  5. LEVEMIR [Concomitant]
     Active Substance: INSULIN DETEMIR
  6. ASPARTINE [Concomitant]
  7. NTG [Concomitant]
     Active Substance: NITROGLYCERIN
  8. NORVASC [Concomitant]
     Active Substance: AMLODIPINE BESYLATE
  9. SYNTHROID [Concomitant]
     Active Substance: LEVOTHYROXINE SODIUM
  10. KLOR-CON [Suspect]
     Active Substance: POTASSIUM CHLORIDE
     Indication: SUPPORTIVE CARE
     Route: 048
  11. MAG OX [Concomitant]
     Active Substance: MAGNESIUM OXIDE
  12. BUMEX [Concomitant]
     Active Substance: BUMETANIDE
  13. OMEGA3 [Concomitant]
  14. ZOCOR [Concomitant]
     Active Substance: SIMVASTATIN

REACTIONS (3)
  - Hyperkalaemia [None]
  - Nodal arrhythmia [None]
  - Renal impairment [None]

NARRATIVE: CASE EVENT DATE: 20150110
